FAERS Safety Report 11374501 (Version 1)
Quarter: 2015Q3

REPORT INFORMATION
  Report Type: Spontaneous
  Country: US (occurrence: None)
  Receive Date: 20150812
  Receipt Date: 20150812
  Transmission Date: 20151125
  Serious: Yes (Life-Threatening, Hospitalization)
  Sender: FDA-Public Use
  Company Number: None

PATIENT
  Age: 53 Year
  Sex: Female
  Weight: 74.84 kg

DRUGS (5)
  1. VEWNLAFAXINE-ER 150 MG TEVA [Suspect]
     Active Substance: VENLAFAXINE HYDROCHLORIDE
     Indication: MAJOR DEPRESSION
     Route: 048
  2. MULTIVITAMIN [Concomitant]
     Active Substance: VITAMINS
  3. VENLAFAXINE-XR [Concomitant]
  4. TRAZODONE [Concomitant]
     Active Substance: TRAZODONE HYDROCHLORIDE
  5. CURCUMIN [Concomitant]
     Active Substance: CURCUMIN

REACTIONS (3)
  - Product quality issue [None]
  - Suicidal ideation [None]
  - Antidepressant drug level decreased [None]

NARRATIVE: CASE EVENT DATE: 20150804
